FAERS Safety Report 16658109 (Version 2)
Quarter: 2019Q3

REPORT INFORMATION
  Report Type: Spontaneous
  Country: US (occurrence: US)
  Receive Date: 20190801
  Receipt Date: 20190815
  Transmission Date: 20191004
  Serious: Yes (Death, Hospitalization)
  Sender: FDA-Public Use
  Company Number: US-ACTELION-A-US2019-193568

PATIENT
  Age: 15 Year
  Sex: Female
  Weight: 42.7 kg

DRUGS (13)
  1. ZAVESCA [Suspect]
     Active Substance: MIGLUSTAT
     Indication: LIPIDOSIS
     Dosage: 200 MG, BID
     Route: 048
     Dates: start: 20131107, end: 20190704
  2. DEPAKOTE [Concomitant]
     Active Substance: DIVALPROEX SODIUM
     Dosage: 1 DOSE AS DIRECTED
     Dates: start: 20110517
  3. IBUPROFEN. [Concomitant]
     Active Substance: IBUPROFEN
     Dosage: 300 MG, TID
     Route: 048
  4. LAMICTAL [Concomitant]
     Active Substance: LAMOTRIGINE
     Dosage: 300 MG, BID
     Route: 048
     Dates: start: 20190505
  5. IBUPROFEN. [Concomitant]
     Active Substance: IBUPROFEN
     Dosage: 1 DOSE AS DIRECTED
     Dates: start: 20110517
  6. STRATTERA [Concomitant]
     Active Substance: ATOMOXETINE HYDROCHLORIDE
     Dosage: 1 DOSE AS DIRECTED
     Dates: start: 20110517
  7. LIDOCAINE W/PRILOCAINE [Concomitant]
     Active Substance: LIDOCAINE\PRILOCAINE
     Dosage: UNK, PRN
     Route: 061
     Dates: start: 20190505
  8. PSEUDOEPHEDRINE. [Concomitant]
     Active Substance: PSEUDOEPHEDRINE HYDROCHLORIDE
     Dosage: 60 MG, Q4HRS
     Route: 048
  9. CANNABIDIOL [Concomitant]
     Active Substance: CANNABIDIOL
     Dosage: 20 MG, BID
  10. ONDANSETRON [Concomitant]
     Active Substance: ONDANSETRON
     Dosage: 4 MG, TID
     Route: 048
  11. ATOMOXETINE. [Concomitant]
     Active Substance: ATOMOXETINE HYDROCHLORIDE
     Dosage: 10 MG, QAM
     Route: 048
  12. ONFI [Concomitant]
     Active Substance: CLOBAZAM
     Dosage: 10 MG, BID
     Dates: start: 20190520
  13. CHOLECALCIFEROL [Concomitant]
     Active Substance: CHOLECALCIFEROL
     Dosage: 5000 IU, QAM
     Route: 048

REACTIONS (14)
  - Acute respiratory distress syndrome [Fatal]
  - Sepsis [Unknown]
  - Atelectasis [Unknown]
  - Dyspnoea [Unknown]
  - Pneumonia parainfluenzae viral [Fatal]
  - Pyrexia [Unknown]
  - Vomiting [Unknown]
  - Hypotension [Unknown]
  - Acute respiratory failure [Fatal]
  - Oxygen saturation decreased [Unknown]
  - Pleural effusion [Unknown]
  - Hypoxia [Unknown]
  - Niemann-Pick disease [Fatal]
  - Dehydration [Unknown]

NARRATIVE: CASE EVENT DATE: 20190629
